FAERS Safety Report 9533238 (Version 2)
Quarter: 2015Q3

REPORT INFORMATION
  Report Type: Spontaneous
  Country: US (occurrence: US)
  Receive Date: 20130507
  Receipt Date: 20150907
  Transmission Date: 20151125
  Serious: No
  Sender: FDA-Public Use
  Company Number: PHEH2013US003010

PATIENT
  Sex: Female
  Weight: 64 kg

DRUGS (8)
  1. LISINOPRIL. [Suspect]
     Active Substance: LISINOPRIL
     Dosage: 5 MG, (IN THE MORNING, AGAIN IN THE EVENING IF IT IS OVER 130)
  2. SUTENT [Suspect]
     Active Substance: SUNITINIB MALATE
     Indication: HEPATIC CANCER
     Dosage: 50 MG, QD (ONCE A DAY FOR 10 DAYS THEN OFF FOR 7 DAYS, THEN TAKE FOR 10 MORE DAYS)
     Route: 048
     Dates: start: 201310
  3. AFINITOR [Suspect]
     Active Substance: EVEROLIMUS
     Indication: RENAL CANCER
     Dosage: 10 MG, QD
     Dates: start: 20121101
  4. OMEPRAZOLE. [Concomitant]
     Active Substance: OMEPRAZOLE
     Indication: PRODUCT USED FOR UNKNOWN INDICATION
     Dosage: 20 MG, (FIRST THING IN THE MORNING)
     Route: 048
  5. SUTENT [Suspect]
     Active Substance: SUNITINIB MALATE
     Indication: RENAL CELL CARCINOMA
  6. LISINOPRIL. [Suspect]
     Active Substance: LISINOPRIL
     Indication: BLOOD PRESSURE MEASUREMENT
     Dosage: 10 MG, QD
     Route: 065
  7. HYDROCHLOROTHIAZIDE. [Concomitant]
     Active Substance: HYDROCHLOROTHIAZIDE
     Indication: PRODUCT USED FOR UNKNOWN INDICATION
     Dosage: 25 MG, QD (ONCE IN THE MORNING)
     Route: 048
  8. AFINITOR [Suspect]
     Active Substance: EVEROLIMUS
     Dosage: UNK
     Route: 065
     Dates: start: 201301, end: 201303

REACTIONS (10)
  - Influenza [Unknown]
  - Crepitations [Unknown]
  - Diarrhoea [Unknown]
  - Weight decreased [Unknown]
  - Oral herpes [Unknown]
  - Memory impairment [Unknown]
  - Tooth disorder [Unknown]
  - General physical health deterioration [Unknown]
  - Dyspnoea [Unknown]
  - Tongue discolouration [Unknown]
